FAERS Safety Report 9803344 (Version 1)
Quarter: 2014Q1

REPORT INFORMATION
  Report Type: Spontaneous
  Country: US (occurrence: US)
  Receive Date: 20140108
  Receipt Date: 20140108
  Transmission Date: 20141002
  Serious: Yes (Death, Other)
  Sender: FDA-Public Use
  Company Number: US-UCBSA-108449

PATIENT
  Age: 57 Year
  Sex: Male

DRUGS (5)
  1. OMEPRAZOLE [Suspect]
  2. ENALAPRIL [Suspect]
  3. FUROSEMIDE [Suspect]
  4. POTASSIUM METAL [Suspect]
  5. SITAGLIPTIN [Suspect]

REACTIONS (1)
  - Completed suicide [Fatal]
